FAERS Safety Report 9383079 (Version 2)
Quarter: 2013Q3

REPORT INFORMATION
  Report Type: Report from Study
  Country: JP (occurrence: JP)
  Receive Date: 20130704
  Receipt Date: 20130719
  Transmission Date: 20140515
  Serious: Yes (Death)
  Sender: FDA-Public Use
  Company Number: JP-009507513-1307JPN001986

PATIENT
  Age: 80 Year
  Sex: Male

DRUGS (5)
  1. JANUVIA TABLETS 50MG [Suspect]
     Indication: TYPE 2 DIABETES MELLITUS
     Dosage: 50 MG, QD
     Route: 048
     Dates: start: 20120523, end: 20120808
  2. PLAVIX [Concomitant]
     Indication: CEREBRAL INFARCTION
     Dosage: 75 MG, QD
     Route: 048
     Dates: start: 20120523, end: 20120808
  3. LENDORMIN D [Concomitant]
     Indication: INSOMNIA
     Dosage: 0.2 MG, QD
     Route: 048
     Dates: start: 20120523, end: 20120808
  4. SERMION [Concomitant]
     Indication: CEREBRAL INFARCTION
     Dosage: 5 MG, BID
     Route: 048
     Dates: start: 20120523, end: 20120808
  5. EC DOPARL [Concomitant]
     Indication: PARKINSONISM
     Dosage: 100 MG, BID
     Route: 048
     Dates: start: 20120523, end: 20120808

REACTIONS (1)
  - Death [Fatal]
